FAERS Safety Report 10256561 (Version 2)
Quarter: 2014Q2

REPORT INFORMATION
  Report Type: Other
  Country: US (occurrence: US)
  Receive Date: 20140624
  Receipt Date: 20140624
  Transmission Date: 20141212
  Serious: Yes (Other)
  Sender: FDA-Public Use
  Company Number: US-GSKPPD-2014GSK002383

PATIENT
  Age: 47 Year
  Sex: Female
  Weight: 109.87 kg

DRUGS (1)
  1. AVANDIA [Suspect]
     Indication: DIABETES MELLITUS
     Route: 048
     Dates: start: 200210, end: 200403

REACTIONS (2)
  - Cardiac failure congestive [None]
  - Chest pain [None]
